FAERS Safety Report 9765162 (Version 1)
Quarter: 2013Q4

REPORT INFORMATION
  Report Type: Spontaneous
  Country: US (occurrence: US)
  Receive Date: 20131217
  Receipt Date: 20131217
  Transmission Date: 20140711
  Serious: No
  Sender: FDA-Public Use
  Company Number: US-GLAXOSMITHKLINE-A1010087A

PATIENT
  Age: 89 Year
  Sex: Female

DRUGS (2)
  1. SORIATANE [Suspect]
     Indication: SKIN INJURY
     Dosage: 25MG PER DAY
     Route: 048
     Dates: start: 20130123, end: 20130128
  2. MULTIPLE MEDICATIONS [Concomitant]
     Indication: NEOPLASM MALIGNANT

REACTIONS (1)
  - Insomnia [Recovering/Resolving]
